FAERS Safety Report 7154793-3 (Version None)
Quarter: 2010Q4

REPORT INFORMATION
  Report Type: 
  Country: None (occurrence: None)
  Receive Date: 20101214
  Receipt Date: 20091109
  Transmission Date: 20110411
  Serious: No
  Sender: FDA-Public Use
  Company Number: US-AMGEN-KDL373667

PATIENT

DRUGS (8)
  1. ENBREL [Suspect]
     Indication: PRODUCT USED FOR UNKNOWN INDICATION
     Dosage: 50 MG, QWK
     Route: 058
  2. MELOXICAM [Concomitant]
  3. LISINOPRIL [Concomitant]
  4. ALENDRONATE SODIUM [Concomitant]
  5. UNSPECIFIED MEDICATION [Concomitant]
     Dosage: UNK UNK, UNK
  6. DOXEPIN HCL [Concomitant]
  7. COLECALCIFEROL [Concomitant]
  8. CALCIUM WITH VITAMIN D [Concomitant]

REACTIONS (1)
  - INCORRECT DOSE ADMINISTERED [None]
